FAERS Safety Report 9672405 (Version 2)
Quarter: 2014Q2

REPORT INFORMATION
  Report Type: Spontaneous
  Country: FR (occurrence: FR)
  Receive Date: 20131106
  Receipt Date: 20140617
  Transmission Date: 20141212
  Serious: Yes (Hospitalization)
  Sender: FDA-Public Use
  Company Number: FR-BRISTOL-MYERS SQUIBB COMPANY-19700723

PATIENT
  Age: 39 Year
  Sex: Male

DRUGS (6)
  1. AZACTAM FOR INJ [Suspect]
     Route: 042
     Dates: start: 20130607, end: 20130624
  2. INEXIUM [Suspect]
     Route: 048
     Dates: start: 20130410, end: 20130624
  3. VANCOMYCIN [Suspect]
     Route: 042
     Dates: start: 20130508, end: 20130624
  4. TAZOCILLINE [Suspect]
     Route: 042
     Dates: start: 20130508, end: 20130526
  5. TIENAM [Suspect]
     Route: 042
     Dates: start: 20130526, end: 20130607
  6. CANCIDAS [Suspect]
     Route: 042
     Dates: start: 201305

REACTIONS (1)
  - Drug reaction with eosinophilia and systemic symptoms [Recovered/Resolved]
